FAERS Safety Report 10229642 (Version 1)
Quarter: 2014Q2

REPORT INFORMATION
  Report Type: Spontaneous
  Country: US (occurrence: None)
  Receive Date: 20140609
  Receipt Date: 20140609
  Transmission Date: 20141212
  Serious: Yes (Hospitalization, Other)
  Sender: FDA-Public Use
  Company Number: SYM-2014-21708

PATIENT
  Age: 87 Year
  Sex: Male

DRUGS (1)
  1. XENAZINE [Suspect]
     Indication: DYSKINESIA
     Dosage: 37.5 MG AM THEN 25MG NOON AND, 3 IN 1 D, ORAL
     Dates: start: 20110505

REACTIONS (1)
  - Pneumonia [None]
